FAERS Safety Report 10191709 (Version 2)
Quarter: 2014Q2

REPORT INFORMATION
  Report Type: Spontaneous
  Country: US (occurrence: US)
  Receive Date: 20140523
  Receipt Date: 20140528
  Transmission Date: 20141212
  Serious: Yes (Other)
  Sender: FDA-Public Use
  Company Number: US-BAXTER-2014BAX025196

PATIENT
  Sex: Male

DRUGS (4)
  1. DIANEAL PD2 (ULTRABAG) [Suspect]
     Indication: PERITONEAL DIALYSIS
     Route: 033
     Dates: start: 20131215, end: 20140507
  2. DIANEAL PD2 (ULTRABAG) [Suspect]
     Route: 033
     Dates: start: 20140515
  3. DIANEAL PD2 (ULTRABAG) [Suspect]
     Indication: PERITONEAL DIALYSIS
     Route: 033
     Dates: start: 20131215, end: 20140507
  4. DIANEAL PD2 (ULTRABAG) [Suspect]
     Route: 033
     Dates: start: 20140515

REACTIONS (2)
  - Umbilical hernia [Recovered/Resolved]
  - Muscle strain [Unknown]
